FAERS Safety Report 9157986 (Version 1)
Quarter: 2013Q1

REPORT INFORMATION
  Report Type: Spontaneous
  Country: PT (occurrence: PT)
  Receive Date: 20130312
  Receipt Date: 20130312
  Transmission Date: 20140127
  Serious: Yes (Other)
  Sender: FDA-Public Use
  Company Number: PT-ROCHE-1198995

PATIENT
  Age: 9 Year
  Sex: Female

DRUGS (2)
  1. CEFTRIAXONE [Suspect]
     Indication: LYME DISEASE
     Dosage: FOR 21 DAYS
     Route: 042
  2. FLUOROMETHOLONE [Concomitant]
     Dosage: 2/2 H, OCULAR
     Route: 061

REACTIONS (1)
  - Keratitis [Recovering/Resolving]
